FAERS Safety Report 6057949-6 (Version None)
Quarter: 2009Q1

REPORT INFORMATION
  Report Type: 
  Country: None (occurrence: None)
  Receive Date: 20090129
  Receipt Date: 20090120
  Transmission Date: 20090719
  Serious: Yes (Hospitalization)
  Sender: FDA-Public Use
  Company Number: US-B.I. PHARMACEUTICALS,INC./RIDGEFIELD-2009-BP-00694BP

PATIENT
  Sex: Male
  Weight: 64 kg

DRUGS (8)
  1. MIRAPEX [Suspect]
     Indication: RESTLESS LEGS SYNDROME
     Dosage: .0625MG
     Route: 048
     Dates: start: 20040301
  2. MIRAPEX [Suspect]
     Dosage: .125MG
     Route: 048
  3. MIRAPEX [Suspect]
     Dosage: .25MG
     Route: 048
  4. MIRAPEX [Suspect]
     Dosage: .375MG
     Route: 048
  5. MIRAPEX [Suspect]
     Route: 048
     Dates: start: 20090101
  6. CLONAZEPAM [Concomitant]
     Indication: RELAXATION THERAPY
     Dosage: 2MG
  7. SIMVASTATIN [Concomitant]
     Indication: BLOOD CHOLESTEROL INCREASED
  8. PHERESED RADIATION PELLETS [Concomitant]
     Indication: PROSTATE CANCER
     Dates: start: 20080101

REACTIONS (5)
  - CONFUSIONAL STATE [None]
  - INSOMNIA [None]
  - MEDICATION ERROR [None]
  - RADIOTHERAPY [None]
  - RESTLESSNESS [None]
